FAERS Safety Report 10095583 (Version 3)
Quarter: 2014Q2

REPORT INFORMATION
  Report Type: Spontaneous
  Country: US (occurrence: US)
  Receive Date: 20140422
  Receipt Date: 20140519
  Transmission Date: 20141212
  Serious: Yes (Hospitalization)
  Sender: FDA-Public Use
  Company Number: US-ACTELION-A-NJ2014-96729

PATIENT
  Age: 55 Year
  Sex: Female

DRUGS (7)
  1. OPSUMIT [Suspect]
     Indication: PULMONARY ARTERIAL HYPERTENSION
     Dosage: 10 MG, QD
     Route: 048
     Dates: start: 20140103, end: 201403
  2. RIOCIGUAT [Suspect]
     Dosage: 2.5 MG, TID
     Route: 048
  3. RIOCIGUAT [Suspect]
     Dosage: 2 MG, TID
  4. REMODULIN [Concomitant]
  5. FLOLAN [Concomitant]
  6. LASIX [Concomitant]
  7. ALDACTONE [Concomitant]

REACTIONS (2)
  - Fluid retention [Recovering/Resolving]
  - Oedema [Recovering/Resolving]
